FAERS Safety Report 7378647-2 (Version None)
Quarter: 2011Q1

REPORT INFORMATION
  Report Type: 
  Country: None (occurrence: None)
  Receive Date: 20110328
  Receipt Date: 20110324
  Transmission Date: 20110831
  Serious: Yes (Other)
  Sender: FDA-Public Use
  Company Number: VE-PFIZER INC-2011057572

PATIENT
  Age: 76 Year
  Sex: Male

DRUGS (3)
  1. ACETYLSALICYLIC ACID [Concomitant]
     Indication: ANTIPLATELET THERAPY
     Dosage: 81 MG, 1X/DAY
     Route: 048
  2. NORVASC [Suspect]
     Indication: HYPERTENSION
     Dosage: 10 MG, 1X/DAY
     Route: 048
  3. BI-EUGLUCON [Concomitant]
     Indication: DIABETES MELLITUS
     Dosage: 500/5 MG, 1X/DAY
     Route: 048

REACTIONS (2)
  - PROSTATIC DISORDER [None]
  - SURGERY [None]
